FAERS Safety Report 21657390 (Version 3)
Quarter: 2023Q1

REPORT INFORMATION
  Report Type: Spontaneous
  Country: FR (occurrence: FR)
  Receive Date: 20221129
  Receipt Date: 20230310
  Transmission Date: 20230418
  Serious: Yes (Death, Other)
  Sender: FDA-Public Use
  Company Number: FR-002147023-NVSC2022FR214238

PATIENT
  Age: 85 Year
  Sex: Male
  Weight: 52.2 kg

DRUGS (2)
  1. DOXYCYCLINE [Suspect]
     Active Substance: DOXYCYCLINE
     Indication: Nervous system disorder
     Dosage: 400MG, QD
     Route: 065
  2. DOXYCYCLINE [Suspect]
     Active Substance: DOXYCYCLINE
     Indication: Neuroborreliosis

REACTIONS (9)
  - Cerebral haemorrhage [Fatal]
  - Fall [Fatal]
  - Head injury [Fatal]
  - Psychomotor disadaptation syndrome [Unknown]
  - Concomitant disease aggravated [Unknown]
  - Malnutrition [Recovering/Resolving]
  - Product use in unapproved indication [Unknown]
  - Prescribed overdose [Unknown]
  - Off label use [Unknown]
